FAERS Safety Report 16738096 (Version 1)
Quarter: 2019Q3

REPORT INFORMATION
  Report Type: Spontaneous
  Country: DE (occurrence: DE)
  Receive Date: 20190824
  Receipt Date: 20190824
  Transmission Date: 20191005
  Serious: Yes (Hospitalization)
  Sender: FDA-Public Use
  Company Number: PHHY2019DE196286

PATIENT
  Age: 53 Year
  Sex: Male
  Weight: 60 kg

DRUGS (8)
  1. GRANISETRON [Suspect]
     Active Substance: GRANISETRON
     Indication: PREMEDICATION
     Dosage: 3 MG, QD
     Route: 042
     Dates: start: 20130121
  2. CISPLATIN. [Suspect]
     Active Substance: CISPLATIN
     Dosage: 50 MG/M2, BIW (80 PERCENT OF DOSES BECAUSE DAY 8 OF CYCLE 1 HAD BE OMITTED.)
     Route: 065
     Dates: start: 20130204, end: 20130430
  3. IVEMEND [Suspect]
     Active Substance: FOSAPREPITANT DIMEGLUMINE
     Indication: PREMEDICATION
     Dosage: 150 MG, QD
     Route: 065
     Dates: start: 20130121
  4. 5-FLUOROURACIL [Suspect]
     Active Substance: FLUOROURACIL
     Indication: HEAD AND NECK CANCER
     Dosage: 2000 MG/M2, QD
     Route: 065
     Dates: start: 20130121, end: 20130430
  5. RANITIDINE. [Suspect]
     Active Substance: RANITIDINE
     Indication: PREMEDICATION
     Dosage: 50 MG, QID
     Route: 042
     Dates: start: 20130121
  6. ERBITUX [Suspect]
     Active Substance: CETUXIMAB
     Indication: HEAD AND NECK CANCER
     Dosage: 400 MG/M2, QD
     Route: 042
     Dates: start: 20130121, end: 20130430
  7. CISPLATIN. [Suspect]
     Active Substance: CISPLATIN
     Indication: HEAD AND NECK CANCER
     Dosage: 50 MG/M2, UNK
     Route: 065
  8. PLIAZON [Concomitant]
     Indication: PROPHYLAXIS
     Dosage: UNK
     Route: 065

REACTIONS (2)
  - General physical health deterioration [Recovered/Resolved]
  - Nausea [Recovered/Resolved]

NARRATIVE: CASE EVENT DATE: 20130122
